FAERS Safety Report 16203127 (Version 5)
Quarter: 2019Q4

REPORT INFORMATION
  Report Type: Report from Study
  Country: US (occurrence: US)
  Receive Date: 20190416
  Receipt Date: 20191218
  Transmission Date: 20200122
  Serious: Yes (Death, Hospitalization, Other)
  Sender: FDA-Public Use
  Company Number: US-BAYER-2019-075949

PATIENT
  Age: 79 Year
  Sex: Male

DRUGS (2)
  1. NEXAVAR [Suspect]
     Active Substance: SORAFENIB
     Indication: HEPATOCELLULAR CARCINOMA
     Dosage: 200 MG, BID
     Route: 048
     Dates: start: 20180601
  2. STIVARGA [Suspect]
     Active Substance: REGORAFENIB
     Indication: HEPATOCELLULAR CARCINOMA
     Dosage: 120 MG, QD
     Route: 048
     Dates: start: 20190416, end: 20190517

REACTIONS (16)
  - Dementia [None]
  - Dehydration [Recovering/Resolving]
  - Weight decreased [Not Recovered/Not Resolved]
  - Dysstasia [None]
  - Bone disorder [Not Recovered/Not Resolved]
  - Fall [None]
  - Hypophagia [None]
  - Death [Fatal]
  - Decreased appetite [Not Recovered/Not Resolved]
  - Emergency care [Not Recovered/Not Resolved]
  - Asthenia [Not Recovered/Not Resolved]
  - Seizure [Not Recovered/Not Resolved]
  - Off label use [None]
  - Gait disturbance [Not Recovered/Not Resolved]
  - Back pain [None]
  - Rib fracture [None]

NARRATIVE: CASE EVENT DATE: 201904
